FAERS Safety Report 19084901 (Version 1)
Quarter: 2021Q2

REPORT INFORMATION
  Report Type: Spontaneous
  Country: DE (occurrence: DE)
  Receive Date: 20210401
  Receipt Date: 20210401
  Transmission Date: 20210717
  Serious: Yes (Death, Life-Threatening, Hospitalization, Other)
  Sender: FDA-Public Use
  Company Number: NVSC2021DE036098

PATIENT
  Age: 74 Year
  Sex: Male
  Weight: 98.5 kg

DRUGS (3)
  1. OXALIPLATIN. [Suspect]
     Active Substance: OXALIPLATIN
     Indication: COLORECTAL CANCER METASTATIC
     Dosage: 136 MG, Q2W
     Route: 042
     Dates: start: 20210118, end: 20210118
  2. 5?FU [Suspect]
     Active Substance: FLUOROURACIL
     Indication: COLORECTAL CANCER METASTATIC
     Dosage: 3840 MG, Q2W
     Route: 042
     Dates: start: 20210118, end: 20210118
  3. CALCIUM LEVOFOLINATE [Suspect]
     Active Substance: LEVOLEUCOVORIN CALCIUM
     Indication: COLORECTAL CANCER METASTATIC
     Dosage: 700 MG, Q2W
     Route: 042
     Dates: start: 20210118, end: 20210118

REACTIONS (2)
  - Dehydration [Not Recovered/Not Resolved]
  - Cerebellar infarction [Fatal]

NARRATIVE: CASE EVENT DATE: 20210201
